FAERS Safety Report 12736124 (Version 3)
Quarter: 2016Q4

REPORT INFORMATION
  Report Type: Spontaneous
  Country: US (occurrence: US)
  Receive Date: 20160912
  Receipt Date: 20161021
  Transmission Date: 20170207
  Serious: No
  Sender: FDA-Public Use
  Company Number: US-PFIZER INC-2016419988

PATIENT
  Age: 58 Year
  Sex: Female
  Weight: 47.17 kg

DRUGS (1)
  1. SUTENT [Suspect]
     Active Substance: SUNITINIB MALATE
     Indication: GASTROINTESTINAL CARCINOMA
     Dosage: 25 MG, DAILY
     Route: 048
     Dates: start: 20131012, end: 20160902

REACTIONS (3)
  - Disease progression [Unknown]
  - Palmar-plantar erythrodysaesthesia syndrome [Unknown]
  - Gastrointestinal carcinoma [Unknown]
